FAERS Safety Report 24227335 (Version 3)
Quarter: 2024Q3

REPORT INFORMATION
  Report Type: Spontaneous
  Country: US (occurrence: US)
  Receive Date: 20240820
  Receipt Date: 20240918
  Transmission Date: 20241017
  Serious: Yes (Life-Threatening, Hospitalization, Other)
  Sender: UCB
  Company Number: US-UCBSA-2024041668

PATIENT
  Age: 39 Year
  Sex: Female

DRUGS (2)
  1. KEPPRA [Suspect]
     Active Substance: LEVETIRACETAM
     Indication: Seizure
     Dosage: 1500 MILLIGRAM, 2X/DAY (BID)
  2. LEVETIRACETAM [Suspect]
     Active Substance: LEVETIRACETAM
     Indication: Seizure
     Dosage: UNK

REACTIONS (14)
  - Coma [Unknown]
  - Endotracheal intubation [Unknown]
  - Systemic lupus erythematosus [Recovered/Resolved]
  - Brain injury [Recovering/Resolving]
  - Lung disorder [Recovering/Resolving]
  - Renal disorder [Recovering/Resolving]
  - Inflammation [Recovering/Resolving]
  - Surgery [Recovered/Resolved]
  - Gallbladder disorder [Recovered/Resolved]
  - Neoplasm [Recovered/Resolved]
  - Cardiac failure [Recovering/Resolving]
  - Depressed mood [Recovering/Resolving]
  - Illness [Recovering/Resolving]
  - Product substitution issue [Unknown]

NARRATIVE: CASE EVENT DATE: 20230401
